FAERS Safety Report 8772766 (Version 2)
Quarter: 2012Q4

REPORT INFORMATION
  Report Type: Report from Study
  Country: JP (occurrence: JP)
  Receive Date: 20120907
  Receipt Date: 20121017
  Transmission Date: 20130627
  Serious: Yes (Other)
  Sender: FDA-Public Use
  Company Number: JP-VERTEX PHARMACEUTICAL INC.-AE-2012-008527

PATIENT
  Age: 74 Year
  Sex: Male

DRUGS (13)
  1. VX-950 [Suspect]
     Indication: HEPATITIS C
     Dosage: 1500 mg, qd
     Route: 048
     Dates: start: 20120529, end: 20120608
  2. PEGINTRON                          /01543001/ [Suspect]
     Indication: HEPATITIS C
     Dosage: 0.69 ?g/kg, qw
     Route: 058
     Dates: start: 20120529, end: 20120605
  3. PEGINTRON                          /01543001/ [Suspect]
     Dosage: 0.69 ?g/kg, qw
     Route: 058
     Dates: end: 20120608
  4. RIBAVIRIN [Concomitant]
     Dosage: 600 mg, qd
     Route: 048
     Dates: start: 20120529, end: 20120605
  5. RIBAVIRIN [Concomitant]
     Dosage: 400 mg, qd
     Route: 048
     Dates: start: 20120606, end: 20120608
  6. VEGETAMIN A [Concomitant]
     Dosage: 1 DF, qd
     Route: 048
     Dates: end: 20120608
  7. LEVOTOMIN                          /00038602/ [Concomitant]
     Dosage: 5 mg, qd
     Route: 048
  8. ISOMYTAL                           /00003001/ [Concomitant]
     Dosage: 1 DF, qd
     Route: 048
  9. BROVARIN [Concomitant]
     Dosage: 1 DF, qd
     Route: 048
  10. BROVARIN [Concomitant]
     Route: 048
  11. HALRACK [Concomitant]
     Dosage: 0.125 mg, qd
     Route: 048
  12. HALRACK [Concomitant]
     Route: 048
  13. AMINOLEBAN                         /01982601/ [Concomitant]
     Dosage: 500 ml, qd
     Route: 042

REACTIONS (4)
  - Hepatic encephalopathy [Not Recovered/Not Resolved]
  - Neutrophil count decreased [Not Recovered/Not Resolved]
  - Dizziness [Recovered/Resolved]
  - Restlessness [Recovered/Resolved]
